FAERS Safety Report 8293495-7 (Version None)
Quarter: 2012Q2

REPORT INFORMATION
  Report Type: 
  Country: None (occurrence: None)
  Receive Date: 20120417
  Receipt Date: 20120410
  Transmission Date: 20120825
  Serious: Yes (Death)
  Sender: FDA-Public Use
  Company Number: CHPA2012US008522

PATIENT
  Age: 76 Year
  Sex: Female

DRUGS (1)
  1. KERI UNKNOWN [Suspect]
     Indication: DRY SKIN
     Dosage: UNK, UNK
     Route: 061
     Dates: start: 20060909

REACTIONS (1)
  - MYOCARDIAL INFARCTION [None]
